FAERS Safety Report 24772372 (Version 4)
Quarter: 2025Q1

REPORT INFORMATION
  Report Type: Spontaneous
  Country: IN (occurrence: IN)
  Receive Date: 20241224
  Receipt Date: 20250123
  Transmission Date: 20250409
  Serious: Yes (Other)
  Sender: PFIZER
  Company Number: IN-PFIZER INC-PV202400167027

PATIENT
  Age: 80 Year
  Sex: Female

DRUGS (15)
  1. CEFOPERAZONE SODIUM\SULBACTAM SODIUM [Interacting]
     Active Substance: CEFOPERAZONE SODIUM\SULBACTAM SODIUM
     Indication: Pneumonia
     Dosage: 3 G, 2X/DAY
  2. FLUCONAZOLE [Interacting]
     Active Substance: FLUCONAZOLE
     Indication: Oral candidiasis
     Dosage: 150 MG, 1X/DAY
  3. ETOFYLLINE\THEOPHYLLINE [Interacting]
     Active Substance: ETOFYLLINE\THEOPHYLLINE
     Indication: Pneumonia
     Dosage: UNK, 1X/DAY
  4. ISOSORBIDE MONONITRATE [Interacting]
     Active Substance: ISOSORBIDE MONONITRATE
     Indication: Myocardial ischaemia
  5. ISOSORBIDE MONONITRATE [Interacting]
     Active Substance: ISOSORBIDE MONONITRATE
     Indication: Chest pain
  6. IVABRADINE [Interacting]
     Active Substance: IVABRADINE
     Indication: Chest pain
  7. IVABRADINE [Interacting]
     Active Substance: IVABRADINE
     Indication: Myocardial ischaemia
  8. ASPIRIN\CLOPIDOGREL [Interacting]
     Active Substance: ASPIRIN\CLOPIDOGREL
  9. PANTOPRAZOLE SODIUM [Concomitant]
     Active Substance: PANTOPRAZOLE SODIUM
  10. CHOLINE SALICYLATE/LIDOCAINE [Concomitant]
     Indication: Mouth ulceration
     Route: 048
  11. CHOLINE SALICYLATE/LIDOCAINE [Concomitant]
     Indication: Oral candidiasis
  12. MONTAIR PLUS [Concomitant]
     Indication: Chronic obstructive pulmonary disease
  13. LIVOGEN [FERROUS FUMARATE;FOLIC ACID] [Concomitant]
     Indication: Anaemia
  14. DNS [Concomitant]
     Indication: Hypoglycaemia
  15. MAGNESIUM HYDROXIDE/PARAFFIN, LIQUID/SODIUM PICOSULFATE [Concomitant]
     Indication: Constipation

REACTIONS (2)
  - Drug interaction [Recovered/Resolved]
  - Oedema peripheral [Recovered/Resolved]
